FAERS Safety Report 4795496-X (Version None)
Quarter: 2005Q4

REPORT INFORMATION
  Report Type: 
  Country: None (occurrence: None)
  Receive Date: 20051012
  Receipt Date: 20050928
  Transmission Date: 20060501
  Serious: Yes (Other)
  Sender: FDA-Public Use
  Company Number: US-ROCHE-419491

PATIENT
  Age: 67 Year
  Sex: Female
  Weight: 61.7 kg

DRUGS (7)
  1. BONIVA [Suspect]
     Indication: OSTEOPENIA
     Route: 048
     Dates: start: 20050922
  2. DILANTIN [Concomitant]
     Route: 048
  3. ARTHROTEC [Concomitant]
     Route: 048
  4. MAVIK [Concomitant]
     Indication: HYPERTENSION
     Route: 048
     Dates: start: 20050824
  5. TYLENOL (CAPLET) [Concomitant]
     Route: 048
  6. TUMS [Concomitant]
     Route: 048
  7. GLUCOSAMINE [Concomitant]
     Route: 048

REACTIONS (11)
  - ABDOMINAL DISCOMFORT [None]
  - ARTHRALGIA [None]
  - DIARRHOEA [None]
  - DIZZINESS [None]
  - FATIGUE [None]
  - INFLUENZA LIKE ILLNESS [None]
  - MOUTH ULCERATION [None]
  - MYALGIA [None]
  - POLLAKIURIA [None]
  - THIRST [None]
  - THROAT IRRITATION [None]
